FAERS Safety Report 5223570-2 (Version None)
Quarter: 2007Q1

REPORT INFORMATION
  Report Type: 
  Country: None (occurrence: None)
  Receive Date: 20070125
  Receipt Date: 20070118
  Transmission Date: 20070707
  Serious: Yes (Other)
  Sender: FDA-Public Use
  Company Number: 2007SP001133

PATIENT
  Sex: Female
  Weight: 31.7518 kg

DRUGS (1)
  1. PEG-INTRON [Suspect]
     Indication: HEPATITIS C
     Dates: end: 20040118

REACTIONS (5)
  - ALOPECIA [None]
  - AMNESIA [None]
  - LEUKAEMIA [None]
  - SUICIDE ATTEMPT [None]
  - WEIGHT DECREASED [None]
